FAERS Safety Report 25094882 (Version 1)
Quarter: 2025Q1

REPORT INFORMATION
  Report Type: Spontaneous
  Country: US (occurrence: None)
  Receive Date: 20250319
  Receipt Date: 20250319
  Transmission Date: 20250409
  Serious: No
  Sender: INCYTE
  Company Number: US-INCYTE CORPORATION-2025IN002713

PATIENT
  Age: 47 Year

DRUGS (1)
  1. JAKAFI [Suspect]
     Active Substance: RUXOLITINIB
     Indication: Product used for unknown indication
     Dosage: 10 MILLIGRAM, BID

REACTIONS (6)
  - Pain [Unknown]
  - Rash [Unknown]
  - Oropharyngeal discomfort [Unknown]
  - Asthenia [Unknown]
  - Cough [Unknown]
  - Product dose omission issue [Unknown]
